FAERS Safety Report 23032691 (Version 2)
Quarter: 2023Q4

REPORT INFORMATION
  Report Type: Report from Study
  Country: ZA (occurrence: ZA)
  Receive Date: 20231005
  Receipt Date: 20231011
  Transmission Date: 20240109
  Serious: Yes (Hospitalization, Other)
  Sender: FDA-Public Use
  Company Number: ZA-002147023-NVSC2023ZA168977

PATIENT
  Age: 75 Year
  Sex: Male

DRUGS (2)
  1. COSENTYX [Suspect]
     Active Substance: SECUKINUMAB
     Indication: Ankylosing spondylitis
     Dosage: 150 MG, QMO
     Route: 058
     Dates: start: 20230608
  2. COSENTYX [Suspect]
     Active Substance: SECUKINUMAB
     Dosage: UNK
     Route: 065

REACTIONS (6)
  - Haemoglobin decreased [Unknown]
  - Blood iron decreased [Unknown]
  - Renal impairment [Not Recovered/Not Resolved]
  - Proteinuria [Not Recovered/Not Resolved]
  - Back pain [Not Recovered/Not Resolved]
  - Product use issue [Unknown]

NARRATIVE: CASE EVENT DATE: 20230601
